FAERS Safety Report 9274527 (Version 1)
Quarter: 2013Q2

REPORT INFORMATION
  Report Type: Report from Study
  Country: JP (occurrence: JP)
  Receive Date: 20130507
  Receipt Date: 20130507
  Transmission Date: 20140414
  Serious: Yes (Hospitalization)
  Sender: FDA-Public Use
  Company Number: JP-009507513-1305JPN000512

PATIENT
  Age: 67 Year
  Sex: Male

DRUGS (12)
  1. REBETOL [Suspect]
     Indication: HEPATITIS C
     Dosage: 800 MG, QD
     Dates: start: 20130205, end: 20130205
  2. REBETOL [Suspect]
     Dosage: 600 MG, QD
     Dates: start: 20130206, end: 20130206
  3. REBETOL [Suspect]
     Dosage: 400 UNK, UNK
     Route: 048
     Dates: start: 20130207, end: 20130402
  4. PEGINTERFERON ALFA-2B [Suspect]
     Indication: HEPATITIS C
     Dosage: 100 MICROGRAM, QW
     Route: 058
     Dates: start: 20130205, end: 20130326
  5. TELAPREVIR [Suspect]
     Indication: HEPATITIS C
     Dosage: 1500 MG, QD
     Route: 048
     Dates: start: 20130205, end: 20130205
  6. TELAPREVIR [Suspect]
     Dosage: 2250 MG QD
     Dates: start: 20130206, end: 20130402
  7. OLMESARTAN MEDOXOMIL [Concomitant]
     Dosage: UNK
     Dates: start: 200709
  8. RABEPRAZOLE SODIUM [Concomitant]
     Dosage: UNK
     Dates: start: 20130212
  9. BETAMETHASONE VALERATE [Concomitant]
     Dosage: UNK
     Dates: start: 20130214
  10. REBAMIPIDE [Concomitant]
     Dosage: UNK
     Dates: start: 20130219
  11. SULPIRIDE [Concomitant]
     Dosage: UNK
     Dates: start: 20130219
  12. RINDERON VG [Concomitant]
     Dosage: UNK
     Dates: start: 20130305

REACTIONS (1)
  - Rash generalised [Recovering/Resolving]
